FAERS Safety Report 7982075-6 (Version None)
Quarter: 2011Q4

REPORT INFORMATION
  Report Type: 
  Country: None (occurrence: None)
  Receive Date: 20111215
  Receipt Date: 20111207
  Transmission Date: 20120403
  Serious: Yes (Hospitalization)
  Sender: FDA-Public Use
  Company Number: JP-EISAI INC-E2090-01804-SPO-JP

PATIENT
  Sex: Female

DRUGS (10)
  1. ZONISAMIDE [Suspect]
     Indication: EPILEPSY
     Route: 048
     Dates: start: 20110809, end: 20110831
  2. PROPOFOL [Concomitant]
     Dosage: UNKNOWN
  3. AMARYL [Concomitant]
     Dosage: UNKNOWN
  4. LANSOPRAZOLE [Concomitant]
     Dosage: UNKNOWN
  5. LOSARTAN POTASSIUM [Concomitant]
     Dosage: UNKNOWN
  6. JANUVIA [Concomitant]
     Dosage: UNKNOWN
  7. ALFAROL [Concomitant]
     Dosage: UNKNOWN
  8. CRESTOR [Concomitant]
     Dosage: UNKNOWN
  9. SEVOFLURANE [Concomitant]
     Dosage: UNKNOWN
  10. FOSAMAX [Concomitant]
     Dosage: 35 MG

REACTIONS (1)
  - STEVENS-JOHNSON SYNDROME [None]
